FAERS Safety Report 6232644-9 (Version None)
Quarter: 2009Q2

REPORT INFORMATION
  Report Type: 
  Country: None (occurrence: None)
  Receive Date: 20090612
  Receipt Date: 20090612
  Transmission Date: 20091009
  Serious: Yes (Other)
  Sender: FDA-Public Use
  Company Number: None

PATIENT
  Age: 34 Year
  Sex: Male
  Weight: 65.7716 kg

DRUGS (1)
  1. CIPROFLAXACIN [Suspect]
     Indication: EPIDIDYMITIS
     Dosage: 1 TABLET TWICE DAILY PO
     Route: 048
     Dates: start: 20080922, end: 20080929

REACTIONS (16)
  - ANOREXIA [None]
  - ANXIETY [None]
  - DISSOCIATION [None]
  - FATIGUE [None]
  - FEELING ABNORMAL [None]
  - HALLUCINATION, AUDITORY [None]
  - HEADACHE [None]
  - INSOMNIA [None]
  - MUSCLE SPASMS [None]
  - MYALGIA [None]
  - NERVOUS SYSTEM DISORDER [None]
  - NEUROPATHY PERIPHERAL [None]
  - PAIN IN EXTREMITY [None]
  - TENDON PAIN [None]
  - TINNITUS [None]
  - VERTIGO [None]
